FAERS Safety Report 15337551 (Version 3)
Quarter: 2018Q3

REPORT INFORMATION
  Report Type: Spontaneous
  Country: US (occurrence: US)
  Receive Date: 20180831
  Receipt Date: 20180926
  Transmission Date: 20181010
  Serious: No
  Sender: FDA-Public Use
  Company Number: US-PFIZER INC-2018348686

PATIENT
  Age: 82 Year
  Sex: Male

DRUGS (1)
  1. XELJANZ XR [Suspect]
     Active Substance: TOFACITINIB CITRATE
     Indication: RHEUMATOID ARTHRITIS
     Dosage: 11 MG, UNK
     Route: 048
     Dates: start: 20180713, end: 20180728

REACTIONS (2)
  - Abdominal pain upper [Recovered/Resolved]
  - Abdominal discomfort [Recovered/Resolved]
